FAERS Safety Report 6544639-6 (Version None)
Quarter: 2010Q1

REPORT INFORMATION
  Report Type: 
  Country: None (occurrence: None)
  Receive Date: 20100121
  Receipt Date: 20100118
  Transmission Date: 20100710
  Serious: Yes (Death)
  Sender: FDA-Public Use
  Company Number: PHHY2010FR02551

PATIENT
  Age: 48 Year
  Sex: Male

DRUGS (7)
  1. LEPONEX [Suspect]
     Indication: SCHIZOPHRENIA, PARANOID TYPE
     Dosage: UNK
     Dates: start: 20091001
  2. LEPONEX [Suspect]
     Dosage: 300 MG, UNK
     Dates: start: 20091024
  3. LEPTICUR [Concomitant]
     Dosage: 3 DF, QD
     Dates: start: 20090930
  4. STILNOX [Concomitant]
     Dosage: 1 DF, UNK
     Dates: start: 20091024
  5. SULFARLEM [Concomitant]
     Dosage: 3 DF, QD
     Dates: start: 20091001
  6. TERCIAN [Concomitant]
     Dosage: 15 MG, QD
     Dates: start: 20091017
  7. VALIUM [Concomitant]
     Dosage: 5 MG, QD
     Dates: start: 20091017

REACTIONS (5)
  - CARDIAC ARREST [None]
  - CARDIOGENIC SHOCK [None]
  - HYPOTENSION [None]
  - MALAISE [None]
  - PULMONARY EMBOLISM [None]
